FAERS Safety Report 7275102-5 (Version None)
Quarter: 2011Q1

REPORT INFORMATION
  Report Type: 
  Country: None (occurrence: None)
  Receive Date: 20110204
  Receipt Date: 20110124
  Transmission Date: 20110831
  Serious: Yes (Hospitalization, Other)
  Sender: FDA-Public Use
  Company Number: PHHY2009CA57779

PATIENT
  Sex: Female

DRUGS (9)
  1. SANDOSTATIN LAR [Suspect]
     Dosage: 30 MG, QW3
     Route: 030
     Dates: start: 20070503
  2. RAMIPRIL [Concomitant]
     Dosage: UNK
  3. SANDOSTATIN LAR [Suspect]
     Dosage: 30 MG, QW2
     Route: 030
  4. SANDOSTATIN LAR [Suspect]
     Dosage: 40 MG, QW3
     Route: 030
  5. SANDOSTATIN LAR [Suspect]
     Dosage: 30 MG, QW2
     Route: 030
     Dates: start: 20070503
  6. SANDOSTATIN LAR [Suspect]
     Dosage: 30 MG, QW2
     Route: 030
  7. SANDOSTATIN LAR [Suspect]
     Indication: CARCINOID TUMOUR OF THE GASTROINTESTINAL TRACT
     Dosage: 20 MG, QMO
     Route: 030
     Dates: start: 20070423, end: 20101206
  8. SANDOSTATIN LAR [Suspect]
     Dosage: 40 MG, EVERY 3 WEEKS
     Route: 030
  9. SANDOSTATIN LAR [Suspect]
     Dosage: 40 MG, EVERY 3 WEEKS
     Route: 030
     Dates: start: 20100726, end: 20100803

REACTIONS (11)
  - HEART RATE INCREASED [None]
  - RHINORRHOEA [None]
  - HYPERTENSION [None]
  - GASTROINTESTINAL OBSTRUCTION [None]
  - VOMITING [None]
  - NASAL CONGESTION [None]
  - WEIGHT DECREASED [None]
  - NASOPHARYNGITIS [None]
  - PAIN [None]
  - DIARRHOEA [None]
  - ABDOMINAL PAIN [None]
